FAERS Safety Report 6421794-X (Version None)
Quarter: 2009Q4

REPORT INFORMATION
  Report Type: 
  Country: None (occurrence: None)
  Receive Date: 20091030
  Receipt Date: 20091028
  Transmission Date: 20100525
  Serious: Yes (Hospitalization)
  Sender: FDA-Public Use
  Company Number: A0813813A

PATIENT
  Age: 55 Year
  Sex: Male

DRUGS (4)
  1. TYKERB [Suspect]
     Indication: NEOPLASM
     Dosage: 1250MG PER DAY
     Route: 048
     Dates: start: 20090930
  2. ANTIBIOTICS [Concomitant]
  3. BLOOD PRESSURE MEDICATION [Concomitant]
  4. COUMADIN [Concomitant]

REACTIONS (3)
  - SURGERY [None]
  - THROMBOSIS [None]
  - WOUND [None]
